FAERS Safety Report 9018174 (Version 1)
Quarter: 2013Q1

REPORT INFORMATION
  Report Type: Spontaneous
  Country: US (occurrence: None)
  Receive Date: 20130111
  Receipt Date: 20130111
  Transmission Date: 20140127
  Serious: Yes (Disabling)
  Sender: FDA-Public Use
  Company Number: None

PATIENT
  Age: 75 Year
  Sex: Female
  Weight: 54.43 kg

DRUGS (1)
  1. ATENOLOL [Suspect]
     Indication: HYPERTENSION
     Dosage: 1 PILL
     Route: 048

REACTIONS (5)
  - Cardiomegaly [None]
  - Dyspnoea exertional [None]
  - Blood pressure decreased [None]
  - Dizziness [None]
  - Asthenia [None]
